FAERS Safety Report 4821723-6 (Version None)
Quarter: 2005Q4

REPORT INFORMATION
  Report Type: 
  Country: None (occurrence: None)
  Receive Date: 20051104
  Receipt Date: 20051104
  Transmission Date: 20060501
  Serious: Yes (Life-Threatening)
  Sender: FDA-Public Use
  Company Number: None

PATIENT
  Age: 48 Year
  Sex: Female
  Weight: 83.9154 kg

DRUGS (1)
  1. PROTOPIC [Suspect]
     Indication: ECZEMA
     Dosage: .1 % BID (TOPICAL)
     Route: 061
     Dates: start: 20010101, end: 20050101

REACTIONS (2)
  - NON-HODGKIN'S LYMPHOMA [None]
  - PAPILLARY THYROID CANCER [None]
